FAERS Safety Report 21575947 (Version 2)
Quarter: 2023Q1

REPORT INFORMATION
  Report Type: Report from Study
  Country: RO (occurrence: None)
  Receive Date: 20221110
  Receipt Date: 20230110
  Transmission Date: 20230417
  Serious: Yes (Hospitalization, Other)
  Sender: FDA-Public Use
  Company Number: RO-Merck Healthcare KGaA-9363851

PATIENT
  Age: 37 Year
  Sex: Female

DRUGS (2)
  1. REBIF [Suspect]
     Active Substance: INTERFERON BETA-1A
     Indication: Relapsing-remitting multiple sclerosis
     Route: 058
     Dates: start: 20170420
  2. MAGNE B6 [Concomitant]
     Active Substance: MAGNESIUM\PYRIDOXINE
     Indication: Product used for unknown indication
     Dates: start: 202210

REACTIONS (4)
  - Chronic gastritis [Not Recovered/Not Resolved]
  - Normochromic anaemia [Not Recovered/Not Resolved]
  - Paraesthesia [Recovering/Resolving]
  - Hemiparaesthesia [Recovering/Resolving]
